FAERS Safety Report 7355788-7 (Version None)
Quarter: 2011Q1

REPORT INFORMATION
  Report Type: 
  Country: None (occurrence: None)
  Receive Date: 20110316
  Receipt Date: 20110308
  Transmission Date: 20110831
  Serious: Yes (Other)
  Sender: FDA-Public Use
  Company Number: US-US-EMD SERONO, INC.-7007663

PATIENT
  Sex: Female

DRUGS (9)
  1. NEURONTIN [Concomitant]
     Indication: PARAESTHESIA
  2. SOLU-MEDROL [Suspect]
     Indication: MULTIPLE SCLEROSIS
     Dates: start: 20080201
  3. CLOBETASOL PROPIONATE [Concomitant]
     Indication: VULVOVAGINAL MYCOTIC INFECTION
  4. NEURONTIN [Concomitant]
     Indication: HYPOAESTHESIA
  5. NEXIUM [Concomitant]
     Indication: GASTROOESOPHAGEAL REFLUX DISEASE
  6. REBIF [Suspect]
     Indication: MULTIPLE SCLEROSIS
     Route: 058
     Dates: start: 20080826
  7. CELEXA [Concomitant]
     Indication: DEPRESSION
  8. FLUCONAZOLE [Concomitant]
     Indication: VULVOVAGINAL MYCOTIC INFECTION
  9. CLOBETASOL PROPIONATE [Concomitant]
     Indication: LICHEN SCLEROSUS

REACTIONS (4)
  - INJECTION SITE PAIN [None]
  - SINUSITIS [None]
  - OESOPHAGEAL CANDIDIASIS [None]
  - IMMUNOSUPPRESSION [None]
